FAERS Safety Report 8291640-0 (Version None)
Quarter: 2012Q2

REPORT INFORMATION
  Report Type: 
  Country: None (occurrence: None)
  Receive Date: 20120417
  Receipt Date: 20110916
  Transmission Date: 20120825
  Serious: No
  Sender: FDA-Public Use
  Company Number: US-ASTRAZENECA-2011SE55961

PATIENT
  Sex: Female
  Weight: 83.9 kg

DRUGS (3)
  1. LIPITOR [Concomitant]
  2. NEXIUM [Suspect]
     Indication: GASTROOESOPHAGEAL REFLUX DISEASE
     Route: 048
     Dates: start: 20100101
  3. METOPROLOL TARTRATE [Concomitant]

REACTIONS (1)
  - HERNIA [None]
